FAERS Safety Report 5827453-6 (Version None)
Quarter: 2008Q2

REPORT INFORMATION
  Report Type: 
  Country: None (occurrence: None)
  Receive Date: 20080601
  Receipt Date: 20080311
  Transmission Date: 20081010
  Serious: No
  Sender: FDA-Public Use
  Company Number: US200802002440

PATIENT
  Age: 72 Year
  Sex: Female
  Weight: 95.7 kg

DRUGS (7)
  1. BYETTA [Suspect]
     Indication: TYPE 2 DIABETES MELLITUS
     Dosage: 5 UG, 2/D, SUBCUTANEOUS
     Route: 058
     Dates: start: 20080121
  2. GLYBURIDE [Concomitant]
  3. AVAPRO [Concomitant]
  4. DIGOXIN [Concomitant]
  5. LIPITOR [Concomitant]
  6. LEVOTHYROXINE SODIUM [Concomitant]
  7. TRAMADOL HCL [Concomitant]

REACTIONS (8)
  - ABDOMINAL DISTENSION [None]
  - CONSTIPATION [None]
  - DIARRHOEA [None]
  - ERUCTATION [None]
  - GASTROINTESTINAL TRACT ADENOMA [None]
  - HICCUPS [None]
  - RECTAL HAEMORRHAGE [None]
  - WEIGHT DECREASED [None]
